FAERS Safety Report 15186262 (Version 1)
Quarter: 2018Q3

REPORT INFORMATION
  Report Type: Report from Study
  Country: US (occurrence: US)
  Receive Date: 20180723
  Receipt Date: 20180723
  Transmission Date: 20181010
  Serious: No
  Sender: FDA-Public Use
  Company Number: US-EXELIXIS-CABO-17011471

PATIENT
  Sex: Male

DRUGS (16)
  1. BRILINTA [Concomitant]
     Active Substance: TICAGRELOR
  2. COREG [Concomitant]
     Active Substance: CARVEDILOL
  3. NIACIN. [Concomitant]
     Active Substance: NIACIN
  4. VITAMIN D [Concomitant]
     Active Substance: CHOLECALCIFEROL
  5. LUTEIN [Concomitant]
     Active Substance: LUTEIN
  6. OXYCODONE/APAP [Concomitant]
     Active Substance: ACETAMINOPHEN\OXYCODONE HYDROCHLORIDE
  7. LISINOPRIL. [Concomitant]
     Active Substance: LISINOPRIL
  8. CALCIUM [Concomitant]
     Active Substance: CALCIUM
  9. CABOMETYX [Suspect]
     Active Substance: CABOZANTINIB S-MALATE
     Indication: RENAL CANCER
     Dosage: 60 MG, QD
     Route: 048
     Dates: start: 20171102
  10. GARLIC. [Concomitant]
     Active Substance: GARLIC
  11. MULTIVITAMINS [Concomitant]
     Active Substance: VITAMINS
  12. LISINOPRIL H [Concomitant]
  13. BENZONATATE. [Concomitant]
     Active Substance: BENZONATATE
  14. ASPIRIN. [Concomitant]
     Active Substance: ASPIRIN
  15. ATORVASTATIN [Concomitant]
     Active Substance: ATORVASTATIN
  16. VITAMIN D3 [Concomitant]
     Active Substance: CHOLECALCIFEROL

REACTIONS (2)
  - Blood pressure increased [Recovered/Resolved]
  - Diarrhoea [Recovered/Resolved]
